FAERS Safety Report 10560879 (Version 4)
Quarter: 2016Q4

REPORT INFORMATION
  Report Type: Report from Study
  Country: AU (occurrence: AU)
  Receive Date: 20141103
  Receipt Date: 20161129
  Transmission Date: 20170206
  Serious: Yes (Hospitalization)
  Sender: FDA-Public Use
  Company Number: PHHO2014AU014437

PATIENT
  Age: 59 Year
  Sex: Male

DRUGS (8)
  1. LYRICA [Suspect]
     Active Substance: PREGABALIN
     Indication: PRODUCT USED FOR UNKNOWN INDICATION
     Route: 048
  2. ASPIRIN. [Concomitant]
     Active Substance: ASPIRIN
     Indication: ATRIAL FIBRILLATION
     Dosage: 100 MG, DAILY IN THE MORNING
     Route: 048
     Dates: start: 20051125
  3. MOXONIDINE [Concomitant]
     Active Substance: MOXONIDINE
     Indication: HYPERTENSION
     Dosage: DAILY (0.2 MG, IN THE MORNING AND O.4 MG IN THE NIGHT)
     Route: 048
     Dates: start: 20130625
  4. AFLUNOV [Suspect]
     Active Substance: INFLUENZA VIRUS VACCINE
     Dosage: .5 ML
     Route: 030
     Dates: start: 20140708, end: 20140708
  5. LYRICA [Suspect]
     Active Substance: PREGABALIN
     Dosage: 150 MG, BID
     Route: 048
  6. SOTALOL. [Suspect]
     Active Substance: SOTALOL
     Indication: HYPERTENSION
     Dosage: 40 MG, BID
     Route: 065
     Dates: start: 20141002, end: 20141025
  7. AFLUNOV [Suspect]
     Active Substance: INFLUENZA VIRUS VACCINE
     Indication: IMMUNISATION
     Dosage: .5 ML
     Route: 030
     Dates: start: 20140617, end: 20140617
  8. ALDACTONE [Concomitant]
     Active Substance: SPIRONOLACTONE
     Indication: HYPERTENSION
     Dosage: 25 MG, BID (MORNING AND MIDDAY)
     Route: 048
     Dates: start: 20130807

REACTIONS (2)
  - Dizziness [Recovered/Resolved with Sequelae]
  - Sinus node dysfunction [Recovered/Resolved with Sequelae]

NARRATIVE: CASE EVENT DATE: 20141025
